FAERS Safety Report 8474134-9 (Version None)
Quarter: 2012Q2

REPORT INFORMATION
  Report Type: 
  Country: None (occurrence: None)
  Receive Date: 20120628
  Receipt Date: 20120625
  Transmission Date: 20120825
  Serious: No
  Sender: FDA-Public Use
  Company Number: US-PFIZER INC-2012152634

PATIENT
  Sex: Female

DRUGS (1)
  1. SUTENT [Suspect]
     Indication: RENAL CANCER
     Dosage: 37.5 MG (TAKING A 12.5MG AND A 25MG CAPSULE), 1X/DAY
     Route: 048
     Dates: start: 20120604

REACTIONS (1)
  - FATIGUE [None]
